FAERS Safety Report 10475532 (Version 1)
Quarter: 2014Q3

REPORT INFORMATION
  Report Type: Spontaneous
  Country: US (occurrence: US)
  Receive Date: 20140925
  Receipt Date: 20140925
  Transmission Date: 20150326
  Serious: Yes (Hospitalization)
  Sender: FDA-Public Use
  Company Number: US-ASTRAZENECA-2014SE70043

PATIENT
  Age: 81 Year
  Sex: Male
  Weight: 86.2 kg

DRUGS (14)
  1. OMEGA 3 FISH OIL [Concomitant]
     Active Substance: FISH OIL\OMEGA-3 FATTY ACIDS
  2. PROVENGE [Suspect]
     Active Substance: SIPULEUCEL-T
     Indication: PROSTATE CANCER METASTATIC
     Route: 042
     Dates: start: 20140822, end: 20140822
  3. TRIAMTERENE AND HYDROCHLOROTHIAZIDE [Suspect]
     Active Substance: HYDROCHLOROTHIAZIDE\TRIAMTERENE
     Indication: HYPERTENSION
     Route: 065
     Dates: end: 20140904
  4. ELIGARD [Concomitant]
     Active Substance: LEUPROLIDE ACETATE
  5. GARLIC. [Concomitant]
     Active Substance: GARLIC
  6. FORMOTEROL W/MOMETASONE [Concomitant]
  7. CHEMOTHERAPY [Concomitant]
     Active Substance: UNSPECIFIED INGREDIENT
  8. MULTIVITAMINS + MINERALS PLUS LUTEIN [Concomitant]
  9. VITAMIN B COMPLEX [Concomitant]
     Active Substance: CYANOCOBALAMIN\DEXPANTHENOL\NIACINAMIDE\PYRIDOXINE HYDROCHLORIDE\RIBOFLAVIN 5^-PHOSPHATE SODIUM\THIAMINE HYDROCHLORIDE\VITAMIN B COMPLEX
  10. NIACIN. [Concomitant]
     Active Substance: NIACIN
  11. CASODEX [Suspect]
     Active Substance: BICALUTAMIDE
     Indication: PROSTATE CANCER METASTATIC
     Route: 048
  12. BIOTHERAPY [Concomitant]
  13. OXYBUTYNIN [Concomitant]
     Active Substance: OXYBUTYNIN
  14. CHOLEST OFF [Concomitant]

REACTIONS (5)
  - Hypertension [Recovered/Resolved]
  - Dehydration [Recovered/Resolved]
  - Blood urea increased [Unknown]
  - Oedema peripheral [Recovered/Resolved]
  - Hyperkalaemia [Recovered/Resolved]

NARRATIVE: CASE EVENT DATE: 20140904
